FAERS Safety Report 9764666 (Version 1)
Quarter: 2013Q4

REPORT INFORMATION
  Report Type: Report from Study
  Country: GB (occurrence: GB)
  Receive Date: 20131217
  Receipt Date: 20131217
  Transmission Date: 20140711
  Serious: Yes (Death)
  Sender: FDA-Public Use
  Company Number: GB-ROCHE-1319285

PATIENT
  Sex: Female

DRUGS (2)
  1. RITUXIMAB [Suspect]
     Indication: RHEUMATOID ARTHRITIS
     Route: 065
     Dates: start: 20120105
  2. METHOTREXATE [Concomitant]
     Dosage: PRE //2003
     Route: 065

REACTIONS (4)
  - Neutropenic sepsis [Fatal]
  - Agranulocytosis [Fatal]
  - Breast cancer metastatic [Fatal]
  - Bronchiectasis [Fatal]
